FAERS Safety Report 7000013-X (Version None)
Quarter: 2010Q3

REPORT INFORMATION
  Report Type: 
  Country: None (occurrence: None)
  Receive Date: 20100920
  Receipt Date: 20100330
  Transmission Date: 20110219
  Serious: No
  Sender: FDA-Public Use
  Company Number: US-ASTRAZENECA-2006UW08934

PATIENT
  Age: 28 Year
  Sex: Male
  Weight: 85.3 kg

DRUGS (7)
  1. SEROQUEL [Suspect]
     Indication: SCHIZOAFFECTIVE DISORDER
     Route: 048
     Dates: start: 19971201, end: 19980401
  2. SEROQUEL [Suspect]
     Dosage: 150 MG 2 TABS BID
     Route: 048
     Dates: start: 19980227
  3. ZYPREXA [Suspect]
     Indication: SCHIZOAFFECTIVE DISORDER
     Dosage: 7.5 MG - 10 MG
     Dates: start: 19961001, end: 19971201
  4. ZYPREXA [Suspect]
     Dates: start: 19961001, end: 19971201
  5. RISPERDAL [Suspect]
     Indication: SCHIZOAFFECTIVE DISORDER
     Dosage: 2 MG TO 3 MG
     Dates: start: 19950901, end: 19960801
  6. LITHIUM CARBONATE [Concomitant]
     Dosage: 300 MG 2 TABS BID
     Dates: start: 19951016
  7. WELLBUTRIN [Concomitant]
     Dates: start: 19980227

REACTIONS (6)
  - BLOOD CHOLESTEROL INCREASED [None]
  - BLOOD TRIGLYCERIDES INCREASED [None]
  - DIABETES MELLITUS [None]
  - HYPERLIPIDAEMIA [None]
  - OBESITY [None]
  - TYPE 1 DIABETES MELLITUS [None]
